FAERS Safety Report 14900907 (Version 1)
Quarter: 2018Q2

REPORT INFORMATION
  Report Type: Spontaneous
  Country: US (occurrence: US)
  Receive Date: 20180516
  Receipt Date: 20180516
  Transmission Date: 20180711
  Serious: No
  Sender: FDA-Public Use
  Company Number: US-GLAXOSMITHKLINE-US2018GSK086936

PATIENT
  Sex: Female

DRUGS (2)
  1. SEREVENT DISKUS [Suspect]
     Active Substance: SALMETEROL XINAFOATE
     Indication: RESPIRATORY DISORDER
     Dosage: UNK
     Route: 055
     Dates: start: 2003
  2. VENTOLIN [Suspect]
     Active Substance: ALBUTEROL SULFATE
     Indication: RESPIRATORY DISORDER
     Dosage: UNK
     Route: 055
     Dates: start: 1998

REACTIONS (1)
  - Drug effect decreased [Unknown]
